FAERS Safety Report 7823893-4 (Version None)
Quarter: 2011Q4

REPORT INFORMATION
  Report Type: 
  Country: None (occurrence: None)
  Receive Date: 20111019
  Receipt Date: 20111011
  Transmission Date: 20120403
  Serious: Yes (Other)
  Sender: FDA-Public Use
  Company Number: JP-B.I. PHARMACEUTICALS,INC./RIDGEFIELD-2011-BP-20518NB

PATIENT
  Sex: Female

DRUGS (6)
  1. DIOVAN [Concomitant]
     Indication: HYPERTENSION
     Dosage: 40 MG
     Route: 048
     Dates: start: 20060401
  2. BENZMARONE [Concomitant]
     Indication: HYPERURICAEMIA
     Dosage: 50 MG
     Route: 048
     Dates: start: 20100416
  3. DIAZEPAM [Concomitant]
     Indication: NEUROSIS
     Dosage: 4 MG
     Route: 048
     Dates: start: 19861215
  4. PRADAXA [Suspect]
     Indication: DEEP VEIN THROMBOSIS
     Dosage: 220 MG
     Route: 048
     Dates: start: 20110520, end: 20110811
  5. SALIPEX LA [Concomitant]
     Indication: HYPERTENSION
     Dosage: 80 MG
     Route: 048
     Dates: start: 19861215
  6. LIPITOR [Concomitant]
     Indication: HYPERCHOLESTEROLAEMIA
     Dosage: 5 MG
     Route: 048
     Dates: start: 20100520

REACTIONS (7)
  - MUSCULOSKELETAL STIFFNESS [None]
  - IRRITABILITY [None]
  - CONSTIPATION [None]
  - URINE OUTPUT DECREASED [None]
  - PLATELET COUNT DECREASED [None]
  - INSOMNIA [None]
  - DIZZINESS [None]
